FAERS Safety Report 22341787 (Version 2)
Quarter: 2023Q2

REPORT INFORMATION
  Report Type: Spontaneous
  Country: US (occurrence: US)
  Receive Date: 20230518
  Receipt Date: 20230518
  Transmission Date: 20230722
  Serious: No
  Sender: FDA-Public Use
  Company Number: US-GALDERMA-US2023004641

PATIENT

DRUGS (6)
  1. DIFFERIN [Suspect]
     Active Substance: ADAPALENE
     Indication: Acne
     Dosage: 1 DOSAGE FORM, QWK
     Route: 061
     Dates: start: 202302
  2. DIFFERIN [Suspect]
     Active Substance: ADAPALENE
     Dosage: 1 DOSAGE FORM, BIW
     Route: 061
     Dates: start: 202302
  3. DIFFERIN [Suspect]
     Active Substance: ADAPALENE
     Dosage: 1 DOSAGE FORM, THREE TIMES A WEEK
     Route: 061
     Dates: start: 202302
  4. DIFFERIN [Suspect]
     Active Substance: ADAPALENE
     Dosage: 1 DOSAGE FORM,
     Route: 061
     Dates: start: 202302, end: 202303
  5. ALLEGRA [Concomitant]
     Active Substance: FEXOFENADINE HYDROCHLORIDE
     Indication: Seasonal allergy
     Dosage: 1 DOSAGE FORM
     Route: 065
  6. ALLEGRA [Concomitant]
     Active Substance: FEXOFENADINE HYDROCHLORIDE
     Indication: Asthma

REACTIONS (3)
  - Epistaxis [Recovered/Resolved]
  - Intentional product misuse [Recovered/Resolved]
  - Intentional underdose [Recovered/Resolved]

NARRATIVE: CASE EVENT DATE: 20230201
